FAERS Safety Report 10025795 (Version 2)
Quarter: 2014Q2

REPORT INFORMATION
  Report Type: Spontaneous
  Country: US (occurrence: US)
  Receive Date: 20140320
  Receipt Date: 20140428
  Transmission Date: 20141212
  Serious: Yes (Death)
  Sender: FDA-Public Use
  Company Number: US-BRISTOL-MYERS SQUIBB COMPANY-20498382

PATIENT
  Age: 83 Year
  Sex: Male

DRUGS (14)
  1. BYETTA [Suspect]
     Dates: start: 20060721, end: 20120214
  2. MEGESTROL ACETATE [Concomitant]
     Route: 048
  3. LACTULOSE [Concomitant]
     Route: 048
  4. ALTACE [Concomitant]
     Dosage: CAPS
     Route: 048
  5. CILOSTAZOL [Concomitant]
     Route: 048
  6. LANTUS [Concomitant]
     Route: 058
  7. LIPITOR [Concomitant]
     Route: 048
  8. LORTAB [Concomitant]
     Indication: PAIN
     Dosage: 1DF: 5MG-500MG
  9. MEGACE [Concomitant]
     Route: 048
  10. NYSTATIN [Concomitant]
     Route: 048
  11. LIDOCAINE [Concomitant]
     Route: 048
  12. DIPHENHYDRAMINE [Concomitant]
     Route: 048
  13. PROCHLORPERAZINE MALEATE [Concomitant]
     Indication: NAUSEA
  14. SYNTHROID [Concomitant]
     Route: 048

REACTIONS (1)
  - Pancreatic carcinoma metastatic [Fatal]
